FAERS Safety Report 23737917 (Version 2)
Quarter: 2024Q3

REPORT INFORMATION
  Report Type: Spontaneous
  Country: US (occurrence: US)
  Receive Date: 20240412
  Receipt Date: 20240718
  Transmission Date: 20241017
  Serious: Yes (Other)
  Sender: JOHNSON AND JOHNSON
  Company Number: US-JNJFOC-20240422872

PATIENT
  Age: 38 Year
  Sex: Female

DRUGS (2)
  1. STELARA [Suspect]
     Active Substance: USTEKINUMAB
     Indication: Crohn^s disease
     Route: 058
  2. PRENATAL [ASCORBIC ACID;CALCIUM CARBONATE;CALCIUM PANTOTHENATE;COPPER [Concomitant]
     Indication: Product used for unknown indication

REACTIONS (3)
  - Crohn^s disease [Not Recovered/Not Resolved]
  - Infection [Unknown]
  - Off label use [Unknown]
